APPROVED DRUG PRODUCT: DOJOLVI
Active Ingredient: TRIHEPTANOIN
Strength: 100% w/w
Dosage Form/Route: LIQUID;ORAL
Application: N213687 | Product #001
Applicant: ULTRAGENYX PHARMACEUTICAL INC
Approved: Jun 30, 2020 | RLD: Yes | RS: Yes | Type: RX

PATENTS:
Patent 8697748 | Expires: Apr 28, 2029

EXCLUSIVITY:
Code: ODE-311 | Date: Jun 30, 2027